FAERS Safety Report 15083405 (Version 1)
Quarter: 2018Q2

REPORT INFORMATION
  Report Type: Spontaneous
  Country: AT (occurrence: AT)
  Receive Date: 20180628
  Receipt Date: 20180628
  Transmission Date: 20180711
  Serious: Yes (Hospitalization)
  Sender: FDA-Public Use
  Company Number: AT-MYLANLABS-2018M1046257

PATIENT
  Age: 59 Year
  Sex: Female

DRUGS (3)
  1. METHADONE [Suspect]
     Active Substance: METHADONE HYDROCHLORIDE
     Indication: METASTATIC BRONCHIAL CARCINOMA
     Dosage: 30 DROPS TWICE DAILY, EACH DROP WITH 0.4MG METHADONE (PREPARED BY ADDING 1G METHADONE TO 100ML PU...
     Route: 065
     Dates: start: 201707
  2. PEMBROLIZUMAB. [Concomitant]
     Active Substance: PEMBROLIZUMAB
     Indication: METASTASES TO BONE
     Dosage: 200MG
     Route: 065
  3. DENOSUMAB [Concomitant]
     Active Substance: DENOSUMAB
     Indication: METASTASES TO BONE
     Route: 065

REACTIONS (5)
  - Chills [Recovered/Resolved]
  - Myoclonus [Recovered/Resolved]
  - Off label use [Unknown]
  - Hyperventilation [Recovered/Resolved]
  - Drug withdrawal syndrome [Recovered/Resolved]
